FAERS Safety Report 13476480 (Version 1)
Quarter: 2017Q2

REPORT INFORMATION
  Report Type: Spontaneous
  Country: US (occurrence: US)
  Receive Date: 20170424
  Receipt Date: 20170424
  Transmission Date: 20170830
  Serious: No
  Sender: FDA-Public Use
  Company Number: None

PATIENT
  Age: 37 Year
  Sex: Female

DRUGS (1)
  1. COSENTYX [Suspect]
     Active Substance: SECUKINUMAB
     Indication: RHEUMATOID ARTHRITIS
     Dosage: 300MG EVERY 7 DAYS SQ
     Route: 058
     Dates: start: 20170323

REACTIONS (2)
  - Weight increased [None]
  - Pain [None]

NARRATIVE: CASE EVENT DATE: 20170417
